FAERS Safety Report 11439662 (Version 1)
Quarter: 2015Q3

REPORT INFORMATION
  Report Type: Spontaneous
  Country: US (occurrence: US)
  Receive Date: 20150901
  Receipt Date: 20150901
  Transmission Date: 20151125
  Serious: No
  Sender: FDA-Public Use
  Company Number: US-ROCHE-1037638

PATIENT
  Age: 45 Year
  Sex: Female
  Weight: 99.88 kg

DRUGS (4)
  1. PEGASYS [Suspect]
     Active Substance: PEGINTERFERON ALFA-2A
     Indication: HEPATITIS C
     Route: 058
     Dates: start: 20120120, end: 20120720
  2. INCIVEK [Suspect]
     Active Substance: TELAPREVIR
     Indication: HEPATITIS C
     Route: 065
     Dates: start: 20120120, end: 20120328
  3. RIBAVIRIN. [Suspect]
     Active Substance: RIBAVIRIN
     Indication: HEPATITIS C
     Dosage: 1000 TO 1200 MG DAILY IN DIVIDED DOSES
     Route: 048
     Dates: start: 20120120, end: 20120120
  4. RIBAVIRIN. [Suspect]
     Active Substance: RIBAVIRIN
     Route: 065
     Dates: start: 20120713

REACTIONS (5)
  - Anorectal discomfort [Recovered/Resolved]
  - Stomatitis [Unknown]
  - Rash [Recovered/Resolved]
  - Choking sensation [Unknown]
  - Dysphagia [Unknown]

NARRATIVE: CASE EVENT DATE: 20120206
